FAERS Safety Report 4862825-8 (Version None)
Quarter: 2005Q4

REPORT INFORMATION
  Report Type: 
  Country: None (occurrence: None)
  Receive Date: 20051221
  Receipt Date: 20051209
  Transmission Date: 20060501
  Serious: Yes (Other)
  Sender: FDA-Public Use
  Company Number: PHBS2005JP18297

PATIENT
  Sex: Female

DRUGS (2)
  1. LIORESAL [Suspect]
     Dosage: 30 MG, ONCE/SINGLE
     Route: 065
  2. DIALYSIS [Concomitant]

REACTIONS (2)
  - LOSS OF CONSCIOUSNESS [None]
  - WRONG DRUG ADMINISTERED [None]
